FAERS Safety Report 4802949-4 (Version None)
Quarter: 2005Q4

REPORT INFORMATION
  Report Type: 
  Country: None (occurrence: None)
  Receive Date: 20051013
  Receipt Date: 20050929
  Transmission Date: 20060501
  Serious: Yes (Hospitalization, Disabling)
  Sender: FDA-Public Use
  Company Number: 2005095736

PATIENT
  Sex: Male

DRUGS (5)
  1. BEXTRA [Suspect]
     Indication: MYOFASCIAL PAIN SYNDROME
     Dosage: ORAL
     Route: 048
     Dates: start: 20031118
  2. CELEBREX [Suspect]
     Indication: MYOFASCIAL PAIN SYNDROME
     Dosage: ORAL
     Route: 048
     Dates: start: 20000626
  3. DICLOFENAC SODIUM [Suspect]
     Indication: MYOFASCIAL PAIN SYNDROME
     Dates: start: 20040101, end: 20041001
  4. VIOXX [Concomitant]
  5. MELOXICAM (MELOXICAM) [Concomitant]

REACTIONS (14)
  - CHEST PAIN [None]
  - DRUG INEFFECTIVE [None]
  - DYSPNOEA [None]
  - FLUID RETENTION [None]
  - LEFT VENTRICULAR FAILURE [None]
  - LYMPHOEDEMA [None]
  - MYOCARDIAL ISCHAEMIA [None]
  - OEDEMA PERIPHERAL [None]
  - PNEUMONIA [None]
  - PULMONARY OEDEMA [None]
  - PYREXIA [None]
  - REFUSAL OF TREATMENT BY PATIENT [None]
  - SLEEP DISORDER [None]
  - STASIS DERMATITIS [None]
